FAERS Safety Report 8974221 (Version 1)
Quarter: 2012Q4

REPORT INFORMATION
  Report Type: Spontaneous
  Country: JP (occurrence: None)
  Receive Date: 20121211
  Receipt Date: 20121211
  Transmission Date: 20130627
  Serious: Yes (Other)
  Sender: FDA-Public Use
  Company Number: DSA_61231_2012

PATIENT

DRUGS (3)
  1. FLUOROURACIL [Suspect]
     Indication: LIP AND/OR ORAL CAVITY CANCER
     Route: 013
  2. CISPLATIN [Suspect]
     Indication: LIP AND/OR ORAL CAVITY CANCER
     Route: 013
  3. DOCETAXEL [Suspect]
     Indication: LIP AND/OR ORAL CAVITY CANCER
     Route: 013

REACTIONS (1)
  - Hyponatraemia [None]
